FAERS Safety Report 8047298-9 (Version None)
Quarter: 2012Q1

REPORT INFORMATION
  Report Type: 
  Country: None (occurrence: None)
  Receive Date: 20120116
  Receipt Date: 20120107
  Transmission Date: 20120608
  Serious: Yes (Hospitalization)
  Sender: FDA-Public Use
  Company Number: US-BAYER-2011-001650

PATIENT
  Age: 24 Year
  Sex: Female

DRUGS (5)
  1. ZITHROMAX [Concomitant]
  2. DROSPIRENONE AND ETHINYL ESTRADIOL [Suspect]
     Indication: ACNE
     Dosage: UNK
     Route: 048
     Dates: start: 20081001, end: 20090101
  3. DIAMOX SRC [Concomitant]
  4. KEPPRA [Concomitant]
  5. FIORICET [Concomitant]

REACTIONS (7)
  - SUPERIOR SAGITTAL SINUS THROMBOSIS [None]
  - BLINDNESS TRANSIENT [None]
  - ANXIETY [None]
  - MIGRAINE [None]
  - WEIGHT INCREASED [None]
  - PAPILLOEDEMA [None]
  - FIBROMYALGIA [None]
